FAERS Safety Report 8895282 (Version 1)
Quarter: 2012Q4

REPORT INFORMATION
  Report Type: 
  Country: IL (occurrence: IL)
  Receive Date: 20121107
  Receipt Date: 20121107
  Transmission Date: 20130627
  Serious: Yes (Hospitalization, Other)
  Sender: FDA-Public Use
  Company Number: IL-VERTEX PHARMACEUTICAL INC.-000000000000000814

PATIENT
  Age: 43 Year
  Sex: Male

DRUGS (3)
  1. INCIVO [Suspect]
     Indication: HEPATITIS C
     Dosage: Dosage Form: Tablet
     Route: 048
     Dates: start: 20120323, end: 2012
  2. PEGASYS [Suspect]
     Indication: HEPATITIS C
     Dosage: UNK
     Dates: start: 20120323
  3. COPEGUS [Concomitant]
     Indication: HEPATITIS C
     Dosage: UNK
     Dates: start: 20120323

REACTIONS (4)
  - Pyrexia [Recovered/Resolved]
  - Anaemia [Recovered/Resolved]
  - Pruritus [Recovered/Resolved]
  - Rash [Recovered/Resolved]
